FAERS Safety Report 6143345-X (Version None)
Quarter: 2009Q2

REPORT INFORMATION
  Report Type: 
  Country: None (occurrence: None)
  Receive Date: 20090403
  Receipt Date: 20090326
  Transmission Date: 20091009
  Serious: Yes (Hospitalization)
  Sender: FDA-Public Use
  Company Number: B0567891A

PATIENT
  Age: 28 Year
  Sex: Female

DRUGS (2)
  1. AVANDIA [Suspect]
     Route: 048
  2. INSULIN [Concomitant]

REACTIONS (3)
  - DRUG TOXICITY [None]
  - OEDEMA [None]
  - WEIGHT INCREASED [None]
